FAERS Safety Report 8321219-3 (Version None)
Quarter: 2012Q1

REPORT INFORMATION
  Report Type: 
  Country: None (occurrence: None)
  Receive Date: 20120315
  Receipt Date: 20110301
  Transmission Date: 20120608
  Serious: No
  Sender: FDA-Public Use
  Company Number: PHHY2011US11707

PATIENT
  Age: 43 Year
  Sex: Female

DRUGS (4)
  1. GABAPENTIN [Concomitant]
  2. METHYLIN (METHYLPHENIDATE HYDROCHLORIDE) [Concomitant]
  3. CLONAZEPAM [Concomitant]
  4. GILENYA [Suspect]
     Dosage: ORAL
     Route: 048

REACTIONS (7)
  - FEELING ABNORMAL [None]
  - BLOOD PRESSURE DECREASED [None]
  - PAIN IN JAW [None]
  - SLUGGISHNESS [None]
  - DIZZINESS [None]
  - CHEST PAIN [None]
  - DYSPNOEA [None]
